FAERS Safety Report 7383933-6 (Version None)
Quarter: 2011Q1

REPORT INFORMATION
  Report Type: 
  Country: None (occurrence: None)
  Receive Date: 20110330
  Receipt Date: 20110328
  Transmission Date: 20110831
  Serious: Yes (Death)
  Sender: FDA-Public Use
  Company Number: US-ABBOTT-11P-163-0712703-00

PATIENT
  Sex: Male

DRUGS (1)
  1. GENGRAF [Suspect]
     Indication: RENAL TRANSPLANT

REACTIONS (4)
  - CARDIAC ARREST [None]
  - DIZZINESS [None]
  - FALL [None]
  - PAIN [None]
